FAERS Safety Report 6109327-9 (Version None)
Quarter: 2009Q1

REPORT INFORMATION
  Report Type: 
  Country: None (occurrence: None)
  Receive Date: 20090306
  Receipt Date: 20090220
  Transmission Date: 20090719
  Serious: Yes (Death)
  Sender: FDA-Public Use
  Company Number: 1000004997

PATIENT
  Age: 36 Year
  Sex: Male
  Weight: 55.8 kg

DRUGS (8)
  1. NEBIVOLOL HCL [Suspect]
     Dosage: 5 MG (5 MG, 1 IN 1 D), ORAL
     Route: 048
     Dates: start: 20081119, end: 20081120
  2. FERINJECT       (FERRIC HYDROXIDE POLYMALTOSE COMPLEX) [Suspect]
     Indication: IRON DEFICIENCY ANAEMIA
     Dosage: 500 MG (500 MG, 1 IN 1 D), INTRAVENOUS
     Route: 042
     Dates: start: 20081119, end: 20081119
  3. FRAGMIN [Suspect]
     Indication: THROMBOSIS
     Dosage: 5000 IU/0.2 ML (1 DOSAGE FORMS, 1 IN 1D), SUBCUTANEOUS
     Route: 058
     Dates: start: 20081118, end: 20081120
  4. ASPIRIN CARDIO (100 MILLIGRAM) [Suspect]
     Dosage: 100 MG (100 MG, 1 IN 1 D), ORAL
     Route: 048
     Dates: start: 20081119, end: 20081120
  5. LASIX [Suspect]
     Dosage: 20 MG /2ML (2 DOSAGE FORMS), INTRAVENOUS BOLUS
     Route: 040
     Dates: start: 20081118, end: 20081119
  6. DIOVAN [Suspect]
     Dosage: 80 MG (80 MG, 1 IN 1 D), ORAL
     Route: 048
     Dates: end: 20081008
  7. RECORMON (EPOETIN BETA) [Concomitant]
  8. LORAZEPAM [Concomitant]

REACTIONS (19)
  - ACUTE HEPATIC FAILURE [None]
  - ARTERIOSCLEROSIS [None]
  - ARTERIOSCLEROSIS CORONARY ARTERY [None]
  - BODY TEMPERATURE INCREASED [None]
  - BRONCHOPNEUMONIA [None]
  - CARDIAC FAILURE ACUTE [None]
  - CARDIOMEGALY [None]
  - DYSPNOEA [None]
  - FAT EMBOLISM [None]
  - HEPATIC CONGESTION [None]
  - HEPATIC FIBROSIS [None]
  - HEPATIC NECROSIS [None]
  - HEPATIC SIDEROSIS [None]
  - INTERNATIONAL NORMALISED RATIO INCREASED [None]
  - INTERSTITIAL LUNG DISEASE [None]
  - MYOCARDIAL FIBROSIS [None]
  - OEDEMA PERIPHERAL [None]
  - PROSTATIC ADENOMA [None]
  - SHOCK [None]
